FAERS Safety Report 9808583 (Version 1)
Quarter: 2014Q1

REPORT INFORMATION
  Report Type: Spontaneous
  Country: US (occurrence: US)
  Receive Date: 20140110
  Receipt Date: 20140110
  Transmission Date: 20141002
  Serious: No
  Sender: FDA-Public Use
  Company Number: US-PFIZER INC-2014004883

PATIENT
  Age: 39 Year
  Sex: Male
  Weight: 99.77 kg

DRUGS (2)
  1. CHILDRENS ADVIL [Suspect]
     Indication: PYREXIA
     Dosage: UNK
     Dates: start: 20140104, end: 201401
  2. CHILDRENS ADVIL [Suspect]
     Indication: OROPHARYNGEAL PAIN

REACTIONS (2)
  - Rash [Unknown]
  - Swelling [Unknown]
